FAERS Safety Report 9898745 (Version 3)
Quarter: 2014Q2

REPORT INFORMATION
  Report Type: Report from Study
  Country: US (occurrence: US)
  Receive Date: 20140214
  Receipt Date: 20140430
  Transmission Date: 20141212
  Serious: Yes (Hospitalization, Other)
  Sender: FDA-Public Use
  Company Number: US-BRISTOL-MYERS SQUIBB COMPANY-20159976

PATIENT
  Age: 72 Year
  Sex: Female
  Weight: 102.6 kg

DRUGS (2)
  1. IPILIMUMAB [Suspect]
     Indication: MALIGNANT MELANOMA
     Dosage: LAST DOSE ON 05DEC13,TOTAL DOSE:300MG
     Route: 042
     Dates: start: 20130628
  2. DOXYCYCLINE [Suspect]
     Indication: CELLULITIS

REACTIONS (2)
  - Clostridium difficile colitis [Recovered/Resolved]
  - Retinal detachment [Unknown]
